FAERS Safety Report 7096895-6 (Version None)
Quarter: 2010Q4

REPORT INFORMATION
  Report Type: 
  Country: None (occurrence: None)
  Receive Date: 20101111
  Receipt Date: 20100212
  Transmission Date: 20110411
  Serious: No
  Sender: FDA-Public Use
  Company Number: US-KINGPHARMUSA00001-K201000178

PATIENT
  Age: 71 Year
  Sex: Female
  Weight: 108.84 kg

DRUGS (4)
  1. FLECTOR [Suspect]
     Indication: MUSCLE INJURY
     Dosage: 1 PATCH, QD FOR 12 HOURS
     Route: 061
     Dates: start: 20100203, end: 20100207
  2. FLECTOR [Suspect]
     Indication: MUSCLE RUPTURE
  3. UNITHROID [Concomitant]
     Indication: THYROIDECTOMY
     Dosage: 0.15 MG, QD
     Route: 048
  4. LISINOPRIL [Concomitant]
     Indication: HYPERTENSION
     Dosage: 20 MG, QD
     Route: 048

REACTIONS (1)
  - HYPERTRICHOSIS [None]
